FAERS Safety Report 5191753-6 (Version None)
Quarter: 2006Q4

REPORT INFORMATION
  Report Type: 
  Country: None (occurrence: None)
  Receive Date: 20061219
  Receipt Date: 20061206
  Transmission Date: 20070319
  Serious: No
  Sender: FDA-Public Use
  Company Number: B0450551A

PATIENT
  Age: 80 Year
  Sex: Female

DRUGS (5)
  1. ALKERAN [Suspect]
     Indication: MULTIPLE MYELOMA
  2. PREDNISOLONE [Suspect]
  3. CYCLOPHOSPHAMIDE [Suspect]
     Dosage: INTRAVENOUS
     Route: 042
  4. DEXAMETHASONE [Suspect]
     Dosage: INTRAVENOUS
     Route: 042
  5. PAMIDRONIC ACID (FORMULATION UNKNOWN) (PAMIDRONIC ACID) [Suspect]
     Dosage: 90 MG

REACTIONS (6)
  - ACTINOMYCOSIS [None]
  - LOCALISED OEDEMA [None]
  - OSTEOMYELITIS [None]
  - OSTEONECROSIS [None]
  - SECRETION DISCHARGE [None]
  - SKIN ODOUR ABNORMAL [None]
